FAERS Safety Report 12093309 (Version 1)
Quarter: 2016Q1

REPORT INFORMATION
  Report Type: Spontaneous
  Country: US (occurrence: None)
  Receive Date: 20160218
  Receipt Date: 20160218
  Transmission Date: 20160526
  Serious: No
  Sender: FDA-Public Use
  Company Number: None

PATIENT

DRUGS (2)
  1. GLIPIZIDE. [Suspect]
     Active Substance: GLIPIZIDE
  2. GLYBURIDE. [Suspect]
     Active Substance: GLYBURIDE

REACTIONS (6)
  - Dizziness [None]
  - Asthenia [None]
  - Fall [None]
  - Wrong drug administered [None]
  - Balance disorder [None]
  - Drug dispensing error [None]

NARRATIVE: CASE EVENT DATE: 2015
